FAERS Safety Report 21998853 (Version 1)
Quarter: 2023Q1

REPORT INFORMATION
  Report Type: Report from Study
  Country: EG (occurrence: EG)
  Receive Date: 20230216
  Receipt Date: 20230216
  Transmission Date: 20230418
  Serious: Yes (Other)
  Sender: FDA-Public Use
  Company Number: EG-002147023-NVSC2023EG030502

PATIENT
  Age: 10 Year
  Sex: Female

DRUGS (4)
  1. OMNITROPE [Suspect]
     Active Substance: SOMATROPIN
     Indication: Growth hormone deficiency
     Dosage: 1 MG, QD
     Route: 058
     Dates: start: 20220830
  2. ZINC [Concomitant]
     Active Substance: ZINC
     Indication: Supplementation therapy
     Dosage: UNK (5CM), QD (ORIGIN)
     Route: 048
  3. VIDROP [Concomitant]
     Indication: Supplementation therapy
     Dosage: 1 DRP, QD (COMPLETE DROP)
     Route: 048
  4. ELBAVIT [Concomitant]
     Indication: Supplementation therapy
     Dosage: UNK, QD (3-5 CM)
     Route: 048

REACTIONS (8)
  - Injection site discolouration [Recovering/Resolving]
  - Injection site pain [Recovering/Resolving]
  - Crying [Not Recovered/Not Resolved]
  - Product preparation error [Not Recovered/Not Resolved]
  - Incorrect dose administered [Not Recovered/Not Resolved]
  - Wrong technique in device usage process [Recovered/Resolved]
  - Poor quality device used [Recovered/Resolved]
  - Wrong device used [Not Recovered/Not Resolved]

NARRATIVE: CASE EVENT DATE: 20220801
